FAERS Safety Report 20190585 (Version 1)
Quarter: 2021Q4

REPORT INFORMATION
  Report Type: Spontaneous
  Country: US (occurrence: None)
  Receive Date: 20211216
  Receipt Date: 20211216
  Transmission Date: 20220303
  Serious: No
  Sender: FDA-Public Use
  Company Number: US-MDD US Operations-2021SUP00038

PATIENT
  Age: 52 Year
  Sex: Female
  Weight: 68.027 kg

DRUGS (7)
  1. TROKENDI XR [Suspect]
     Active Substance: TOPIRAMATE
     Indication: Migraine
     Dosage: 200 MG, 1X/DAY AT BEDTIME
     Route: 048
     Dates: start: 2018, end: 202104
  2. TROKENDI XR [Suspect]
     Active Substance: TOPIRAMATE
     Dosage: 200 MG, 1X/DAY AT BEDTIME
     Route: 048
     Dates: start: 20210413
  3. TROKENDI XR [Suspect]
     Active Substance: TOPIRAMATE
     Dosage: 200 MG, 1X/DAY AT BEDTIME
     Route: 048
     Dates: start: 2018, end: 202104
  4. TROKENDI XR [Suspect]
     Active Substance: TOPIRAMATE
     Dosage: 200 MG, 1X/DAY AT BEDTIME
     Route: 048
     Dates: start: 20210413
  5. TROKENDI XR [Suspect]
     Active Substance: TOPIRAMATE
     Dosage: 200 MG, 1X/DAY AT BEDTIME
     Route: 048
     Dates: start: 2018, end: 202104
  6. TROKENDI XR [Suspect]
     Active Substance: TOPIRAMATE
     Dosage: 200 MG, 1X/DAY AT BEDTIME
     Route: 048
     Dates: start: 20210413
  7. UNSPECIFIED INGREDIENT [Concomitant]
     Active Substance: UNSPECIFIED INGREDIENT

REACTIONS (2)
  - Product dose omission issue [Recovered/Resolved]
  - Headache [None]

NARRATIVE: CASE EVENT DATE: 20210601
